FAERS Safety Report 6334717-9 (Version None)
Quarter: 2009Q3

REPORT INFORMATION
  Report Type: 
  Country: None (occurrence: None)
  Receive Date: 20090831
  Receipt Date: 20090820
  Transmission Date: 20100115
  Serious: Yes (Hospitalization, Other)
  Sender: FDA-Public Use
  Company Number: US-ELI_LILLY_AND_COMPANY-US200908000320

PATIENT
  Sex: Female

DRUGS (9)
  1. FORTEO [Suspect]
     Indication: OSTEOPOROSIS
     Dosage: 20 UG, DAILY (1/D)
     Dates: start: 20080101
  2. CELEBREX [Concomitant]
  3. PREDNISONE TAB [Concomitant]
  4. PLAQUENIL                               /NET/ [Concomitant]
  5. METHOTREXATE SODIUM [Concomitant]
     Dosage: 25 MG, UNK
     Route: 058
  6. LEUCOVORIN CALCIUM [Concomitant]
  7. FOLIC ACID [Concomitant]
  8. EVOXAC [Concomitant]
  9. TENORMIN [Concomitant]

REACTIONS (1)
  - MENINGIOMA [None]
